FAERS Safety Report 5864080-9 (Version None)
Quarter: 2008Q3

REPORT INFORMATION
  Report Type: 
  Country: None (occurrence: None)
  Receive Date: 20080829
  Receipt Date: 20080818
  Transmission Date: 20090109
  Serious: Yes (Other)
  Sender: FDA-Public Use
  Company Number: US-BAYER-200831205NA

PATIENT
  Age: 40 Year
  Sex: Female

DRUGS (3)
  1. BETASERON [Suspect]
     Indication: RELAPSING-REMITTING MULTIPLE SCLEROSIS
     Dosage: AS USED: 4 MIU
     Route: 058
     Dates: start: 20080705, end: 20080805
  2. BETASERON [Suspect]
     Route: 058
     Dates: start: 20070525, end: 20070801
  3. BETASERON [Suspect]
     Route: 058
     Dates: start: 20030606, end: 20050823

REACTIONS (7)
  - AFFECT LABILITY [None]
  - CRYING [None]
  - DEPRESSION [None]
  - FEELING ABNORMAL [None]
  - MOOD SWINGS [None]
  - NO ADVERSE EVENT [None]
  - SUICIDAL IDEATION [None]
